FAERS Safety Report 23338994 (Version 7)
Quarter: 2024Q3

REPORT INFORMATION
  Report Type: Report from Study
  Country: US (occurrence: US)
  Receive Date: 20231226
  Receipt Date: 20240711
  Transmission Date: 20241017
  Serious: Yes (Other)
  Sender: NOVARTIS
  Company Number: US-002147023-NVSC2023US273536

PATIENT
  Sex: Female

DRUGS (1)
  1. KESIMPTA [Suspect]
     Active Substance: OFATUMUMAB
     Indication: Product used for unknown indication
     Dosage: UNK
     Route: 065

REACTIONS (7)
  - Optic neuritis [Unknown]
  - Stress [Unknown]
  - Memory impairment [Unknown]
  - Muscular weakness [Unknown]
  - Paraesthesia [Unknown]
  - Asthenia [Unknown]
  - Vision blurred [Unknown]
